FAERS Safety Report 9807586 (Version 3)
Quarter: 2015Q4

REPORT INFORMATION
  Report Type: Spontaneous
  Country: US (occurrence: US)
  Receive Date: 20140110
  Receipt Date: 20151228
  Transmission Date: 20160305
  Serious: Yes (Hospitalization, Other)
  Sender: FDA-Public Use
  Company Number: US-SANOFI-AVENTIS-2013SA046826

PATIENT
  Age: 41 Year
  Sex: Male

DRUGS (22)
  1. SODIUM CHLORIDE. [Concomitant]
     Active Substance: SODIUM CHLORIDE
     Dosage: 0.9%
     Route: 042
     Dates: start: 20110422, end: 20110522
  2. HYDRODIURIL [Concomitant]
     Active Substance: HYDROCHLOROTHIAZIDE
     Dosage: 1X25 MG
     Route: 048
     Dates: start: 20110426, end: 20110526
  3. NORVASC [Concomitant]
     Active Substance: AMLODIPINE BESYLATE
     Route: 048
     Dates: start: 20110427, end: 20110527
  4. AMLODIPINE [Concomitant]
     Active Substance: AMLODIPINE BESYLATE
  5. COLACE [Concomitant]
     Active Substance: DOCUSATE SODIUM
     Dates: start: 20110428, end: 20110528
  6. PLAVIX [Suspect]
     Active Substance: CLOPIDOGREL BISULFATE
     Indication: CEREBROVASCULAR ACCIDENT
     Route: 048
     Dates: start: 20110419, end: 20110503
  7. LOPRESSOR [Concomitant]
     Active Substance: METOPROLOL TARTRATE
     Dosage: 25 MG
     Route: 048
     Dates: start: 20110422, end: 20110522
  8. LEVEMIR [Concomitant]
     Active Substance: INSULIN DETEMIR
     Dosage: SOLUTION
     Dates: start: 20110427, end: 20110527
  9. SENOKOT [Concomitant]
     Active Substance: SENNOSIDES
     Dosage: 2X8.6 AT BEDTIME AS NEEDED
     Route: 048
     Dates: start: 20110427, end: 20110527
  10. TYLENOL [Concomitant]
     Active Substance: ACETAMINOPHEN
     Route: 048
     Dates: start: 20110427, end: 20110527
  11. DULCOLAX NOS [Concomitant]
     Active Substance: BISACODYL OR DOCUSATE SODIUM
     Dates: start: 20110427, end: 20110527
  12. NORCO [Concomitant]
     Active Substance: ACETAMINOPHEN\HYDROCODONE BITARTRATE
     Dosage: EVERY 4 HOURS AS NEEDED
     Route: 048
     Dates: start: 20110427, end: 20110527
  13. MORPHINE SULFATE. [Concomitant]
     Active Substance: MORPHINE SULFATE
  14. CLEOCIN [Concomitant]
     Active Substance: CLINDAMYCIN PHOSPHATE
  15. ZOCOR [Concomitant]
     Active Substance: SIMVASTATIN
     Dosage: 80 MG
     Route: 048
     Dates: start: 20110427, end: 20110527
  16. DILANTIN [Concomitant]
     Active Substance: PHENYTOIN
     Dosage: EXTENDED CAPSULE?1X100 MG
     Route: 048
     Dates: start: 20110427, end: 20110527
  17. NICODERM CQ [Concomitant]
     Active Substance: NICOTINE
     Dosage: PATCH
     Dates: start: 20110427, end: 20110527
  18. PLAVIX [Suspect]
     Active Substance: CLOPIDOGREL BISULFATE
     Indication: CARDIAC DISORDER
     Route: 048
     Dates: start: 20110419, end: 20110503
  19. PNEUMOCOCCAL VACCINE POLYVALENT NOS [Concomitant]
     Active Substance: PNEUMOCOCCAL VACCINE POLYVALENT
     Dates: start: 20110422, end: 20110522
  20. NOVOLOG [Concomitant]
     Active Substance: INSULIN ASPART
     Dosage: SOLUTION
     Dates: start: 20110422, end: 20110522
  21. MILK OF MAGNESIA [Concomitant]
     Active Substance: MAGNESIUM HYDROXIDE
     Route: 048
     Dates: start: 20110427, end: 20110527
  22. HEPARIN [Concomitant]
     Active Substance: HEPARIN SODIUM
     Dosage: SOLUTION
     Dates: start: 20110427, end: 20110527

REACTIONS (5)
  - Gastrointestinal haemorrhage [Recovered/Resolved]
  - Injury [Unknown]
  - Haemorrhagic anaemia [Unknown]
  - Internal haemorrhage [Recovered/Resolved]
  - Unevaluable event [Unknown]

NARRATIVE: CASE EVENT DATE: 20110503
